FAERS Safety Report 5940024-6 (Version None)
Quarter: 2008Q4

REPORT INFORMATION
  Report Type: 
  Country: None (occurrence: None)
  Receive Date: 20081104
  Receipt Date: 20081022
  Transmission Date: 20090506
  Serious: Yes (Other)
  Sender: FDA-Public Use
  Company Number: PHHY2008US25940

PATIENT
  Sex: Female

DRUGS (1)
  1. TASIGNA [Suspect]
     Dosage: 400 MG, BID
     Route: 048
     Dates: start: 20080901, end: 20080901

REACTIONS (4)
  - HEART RATE INCREASED [None]
  - OEDEMA MOUTH [None]
  - PLEURAL EFFUSION [None]
  - SWELLING FACE [None]
